FAERS Safety Report 12689470 (Version 1)
Quarter: 2016Q3

REPORT INFORMATION
  Report Type: Spontaneous
  Country: US (occurrence: None)
  Receive Date: 20160825
  Receipt Date: 20160825
  Transmission Date: 20161109
  Serious: Yes (Hospitalization)
  Sender: FDA-Public Use
  Company Number: None

PATIENT
  Age: 3 Year
  Sex: Female
  Weight: 15.6 kg

DRUGS (3)
  1. KALETRA [Concomitant]
     Active Substance: LOPINAVIR\RITONAVIR
  2. LAMIVUDINE. [Concomitant]
     Active Substance: LAMIVUDINE
  3. ZIDOVUDINE. [Suspect]
     Active Substance: ZIDOVUDINE
     Indication: HIV INFECTION
     Route: 048
     Dates: start: 20160411, end: 20160819

REACTIONS (3)
  - Haemoglobin decreased [None]
  - Anaemia [None]
  - Abdominal pain upper [None]

NARRATIVE: CASE EVENT DATE: 20160819
